FAERS Safety Report 5296587-X (Version None)
Quarter: 2007Q2

REPORT INFORMATION
  Report Type: 
  Country: None (occurrence: None)
  Receive Date: 20070413
  Receipt Date: 20070330
  Transmission Date: 20071010
  Serious: Yes (Hospitalization)
  Sender: FDA-Public Use
  Company Number: US-AMGEN-KDL209268

PATIENT
  Sex: Female

DRUGS (4)
  1. ENBREL [Suspect]
     Indication: RHEUMATOID ARTHRITIS
     Route: 058
     Dates: start: 20011201, end: 20061219
  2. SYNTHROID [Concomitant]
  3. ACTONEL [Concomitant]
  4. VITAMIN D [Concomitant]

REACTIONS (4)
  - DEVICE FAILURE [None]
  - JOINT DISLOCATION [None]
  - OSTEOLYSIS [None]
  - RHEUMATOID ARTHRITIS [None]
